FAERS Safety Report 9392958 (Version 1)
Quarter: 2013Q3

REPORT INFORMATION
  Report Type: Spontaneous
  Country: US (occurrence: US)
  Receive Date: 20130710
  Receipt Date: 20130710
  Transmission Date: 20140515
  Serious: No
  Sender: FDA-Public Use
  Company Number: US-PFIZER INC-2013201730

PATIENT
  Age: 77 Year
  Sex: Male

DRUGS (1)
  1. SUTENT [Suspect]
     Indication: METASTATIC CARCINOID TUMOUR
     Dosage: 50 MG, 1X/DAY

REACTIONS (2)
  - Disease progression [Unknown]
  - Metastatic carcinoid tumour [Unknown]
